FAERS Safety Report 4849519-X (Version None)
Quarter: 2005Q4

REPORT INFORMATION
  Report Type: 
  Country: None (occurrence: None)
  Receive Date: 20051207
  Receipt Date: 20051128
  Transmission Date: 20060501
  Serious: Yes (Other)
  Sender: FDA-Public Use
  Company Number: 2005162618

PATIENT
  Age: 31 Year
  Sex: Female

DRUGS (1)
  1. PROVERA [Suspect]
     Indication: MENSTRUATION IRREGULAR
     Dosage: (10 MG,), ORAL
     Route: 048

REACTIONS (3)
  - BONE DISORDER [None]
  - CONDITION AGGRAVATED [None]
  - HYPERPLASIA [None]
